FAERS Safety Report 18731983 (Version 2)
Quarter: 2021Q1

REPORT INFORMATION
  Report Type: Spontaneous
  Country: CN (occurrence: CN)
  Receive Date: 20210112
  Receipt Date: 20210309
  Transmission Date: 20210419
  Serious: Yes (Hospitalization, Other)
  Sender: FDA-Public Use
  Company Number: CN-009507513-2101CHN003774

PATIENT
  Age: 54 Year
  Sex: Female
  Weight: 73.3 kg

DRUGS (6)
  1. METHYLPREDNISOLONE. [Suspect]
     Active Substance: METHYLPREDNISOLONE
     Indication: RHEUMATOID ARTHRITIS
     Dosage: 8 MILLIGRAM, QD
     Route: 048
     Dates: start: 20190606, end: 20190706
  2. PREDNISONE. [Suspect]
     Active Substance: PREDNISONE
     Indication: INFLAMMATION
  3. METHYLPREDNISOLONE. [Suspect]
     Active Substance: METHYLPREDNISOLONE
     Indication: INFLAMMATION
  4. PREDNISONE. [Suspect]
     Active Substance: PREDNISONE
     Indication: RHEUMATOID ARTHRITIS
     Dosage: 10 MG IN THE MORNING, 5 MG IN THE NOON, 5 MG IN THE NIGHT
     Route: 048
     Dates: start: 20190530, end: 20190606
  5. KEYTRUDA [Suspect]
     Active Substance: PEMBROLIZUMAB
     Indication: COLON CANCER METASTATIC
     Dosage: 200 MILLIGRAM, ONCE
     Route: 041
     Dates: start: 20190525, end: 20190525
  6. AVASTIN [Concomitant]
     Active Substance: BEVACIZUMAB
     Indication: COLON CANCER METASTATIC
     Dosage: 400 MILLIGRAM
     Dates: start: 20190525

REACTIONS (10)
  - Mitral valve incompetence [Unknown]
  - Sinus tachycardia [Unknown]
  - Rash [Recovered/Resolved]
  - Product use in unapproved indication [Unknown]
  - Immune-mediated arthritis [Recovered/Resolved]
  - Left ventricular enlargement [Unknown]
  - Blood pressure increased [Unknown]
  - Infusion related reaction [Recovered/Resolved]
  - Pulmonary valve incompetence [Unknown]
  - Tricuspid valve incompetence [Unknown]

NARRATIVE: CASE EVENT DATE: 20190525
